FAERS Safety Report 19856906 (Version 2)
Quarter: 2021Q4

REPORT INFORMATION
  Report Type: Spontaneous
  Country: CN (occurrence: CN)
  Receive Date: 20210920
  Receipt Date: 20211022
  Transmission Date: 20220304
  Serious: Yes (Hospitalization, Other)
  Sender: FDA-Public Use
  Company Number: CN-LUPIN PHARMACEUTICALS INC.-2021-17771

PATIENT
  Age: 27 Year
  Sex: Female

DRUGS (2)
  1. POTASSIUM CHLORIDE [Suspect]
     Active Substance: POTASSIUM CHLORIDE
     Indication: Complication of pregnancy
     Dosage: UNK, (TRANSABDOMINAL ULTRASOUND-GUIDED; 2-5ML OF 10% POTASSIUM CHLORIDE, INJECTION)
     Route: 016
  2. PROGESTERONE [Suspect]
     Active Substance: PROGESTERONE
     Indication: Preterm premature rupture of membranes
     Dosage: 40 MILLIGRAM, QD
     Route: 030

REACTIONS (3)
  - Premature rupture of membranes [Unknown]
  - Maternal exposure during pregnancy [Unknown]
  - Normal newborn [Unknown]
